FAERS Safety Report 11064659 (Version 2)
Quarter: 2015Q2

REPORT INFORMATION
  Report Type: Spontaneous
  Country: US (occurrence: US)
  Receive Date: 20150424
  Receipt Date: 20150501
  Transmission Date: 20150821
  Serious: Yes (Other)
  Sender: FDA-Public Use
  Company Number: US-TAKEDA-2015TUS005354

PATIENT
  Age: 30 Year
  Sex: Male
  Weight: 98.87 kg

DRUGS (8)
  1. BRINTELLIX [Suspect]
     Active Substance: VORTIOXETINE HYDROBROMIDE
     Indication: ANXIETY DISORDER
  2. BRINTELLIX [Suspect]
     Active Substance: VORTIOXETINE HYDROBROMIDE
     Indication: ANXIETY
  3. ADDERALL [Concomitant]
     Active Substance: AMPHETAMINE ASPARTATE\AMPHETAMINE SULFATE\DEXTROAMPHETAMINE SACCHARATE\DEXTROAMPHETAMINE SULFATE
     Indication: PSYCHOMOTOR HYPERACTIVITY
     Dosage: 30 MG, TID
     Route: 048
     Dates: start: 20140522
  4. DIAZEPAM. [Concomitant]
     Active Substance: DIAZEPAM
     Dosage: 10-20MG PRN
     Route: 048
     Dates: start: 20150203
  5. ALPRAZOLAM. [Concomitant]
     Active Substance: ALPRAZOLAM
     Indication: SOCIAL PHOBIA
     Dosage: 1.2 MG, PRN
     Dates: start: 20140508
  6. CLONAZEPAM. [Concomitant]
     Active Substance: CLONAZEPAM
     Indication: ANXIETY DISORDER
     Dosage: 0.3 MG, UNK
     Route: 048
     Dates: start: 20140508, end: 20150203
  7. BRINTELLIX [Suspect]
     Active Substance: VORTIOXETINE HYDROBROMIDE
     Indication: DEPRESSIVE SYMPTOM
     Dosage: 10 MG, QD
     Route: 048
     Dates: start: 20150203, end: 20150219
  8. DIAZEPAM. [Concomitant]
     Active Substance: DIAZEPAM
     Indication: ANXIETY DISORDER
     Dosage: 5 - 10MG PRN
     Route: 048
     Dates: start: 20150203

REACTIONS (2)
  - Suicidal ideation [Recovered/Resolved]
  - Product use issue [Recovered/Resolved]

NARRATIVE: CASE EVENT DATE: 20150210
